FAERS Safety Report 11430813 (Version 1)
Quarter: 2015Q3

REPORT INFORMATION
  Report Type: Spontaneous
  Country: US (occurrence: US)
  Receive Date: 20150828
  Receipt Date: 20150828
  Transmission Date: 20151125
  Serious: No
  Sender: FDA-Public Use
  Company Number: US-ROCHE-1194479

PATIENT
  Age: 35 Year
  Sex: Male
  Weight: 83.99 kg

DRUGS (5)
  1. RIBASPHERE RIBAPAK [Suspect]
     Active Substance: RIBAVIRIN
     Indication: CHRONIC HEPATITIS C
     Dosage: 600 AM /400 PM DIVIDED DOSES
     Route: 048
     Dates: start: 20130215
  2. INCIVEK [Suspect]
     Active Substance: TELAPREVIR
     Indication: CHRONIC HEPATITIS C
     Route: 048
     Dates: start: 20130215
  3. TRAMADOL. [Concomitant]
     Active Substance: TRAMADOL
  4. ZOLOFT [Concomitant]
     Active Substance: SERTRALINE HYDROCHLORIDE
  5. PEGASYS [Suspect]
     Active Substance: PEGINTERFERON ALFA-2A
     Indication: CHRONIC HEPATITIS C
     Route: 058
     Dates: start: 20130215

REACTIONS (13)
  - Insomnia [Unknown]
  - Bone pain [Unknown]
  - Vision blurred [Unknown]
  - Irritability [Unknown]
  - Myalgia [Unknown]
  - Chills [Unknown]
  - Diarrhoea [Recovered/Resolved]
  - Decreased appetite [Unknown]
  - Blood pressure increased [Recovered/Resolved]
  - Headache [Recovered/Resolved]
  - Nausea [Recovered/Resolved]
  - Photophobia [Unknown]
  - Amnesia [Unknown]

NARRATIVE: CASE EVENT DATE: 20130221
